FAERS Safety Report 8227679-0 (Version None)
Quarter: 2012Q1

REPORT INFORMATION
  Report Type: 
  Country: None (occurrence: None)
  Receive Date: 20120322
  Receipt Date: 20120319
  Transmission Date: 20120608
  Serious: Yes (Other)
  Sender: FDA-Public Use
  Company Number: US-PFIZER INC-2012071559

PATIENT
  Sex: Male
  Weight: 79.365 kg

DRUGS (11)
  1. WARFARIN [Concomitant]
     Dosage: UNK
  2. AVODART [Concomitant]
     Indication: PROSTATE CANCER
     Dosage: UNK
  3. METOPROLOL [Concomitant]
     Indication: HYPERTENSION
     Dosage: UNK
  4. AMLODIPINE [Concomitant]
     Indication: HYPERTENSION
     Dosage: UNK
  5. DOXEPIN [Concomitant]
     Dosage: UNK
  6. LIPITOR [Suspect]
     Indication: BLOOD CHOLESTEROL INCREASED
     Dosage: 20 MG, 1X/DAY
     Route: 048
  7. ACETYLSALICYLIC ACID [Concomitant]
     Dosage: UNK
  8. BENICAR [Concomitant]
     Dosage: UNK
  9. SIMVASTATIN [Concomitant]
     Dosage: UNK
  10. LIPITOR [Suspect]
     Dosage: 10 MG, 1X/DAY
     Route: 048
  11. SYMBICORT [Concomitant]
     Indication: PULMONARY OEDEMA
     Dosage: UNK

REACTIONS (4)
  - ARTERIAL OCCLUSIVE DISEASE [None]
  - PROSTATIC DISORDER [None]
  - BODY HEIGHT DECREASED [None]
  - WEIGHT DECREASED [None]
